FAERS Safety Report 16741674 (Version 1)
Quarter: 2019Q4

REPORT INFORMATION
  Report Type: Spontaneous
  Country: US (occurrence: US)
  Receive Date: 20190826
  Receipt Date: 20190826
  Transmission Date: 20200122
  Serious: Yes (Hospitalization)
  Sender: FDA-Public Use
  Company Number: None

PATIENT
  Age: 60 Year
  Sex: Female

DRUGS (19)
  1. OMEPRAZOLE. [Concomitant]
     Active Substance: OMEPRAZOLE
  2. LEVOTHRYINE [Concomitant]
  3. HUMIRA [Suspect]
     Active Substance: ADALIMUMAB
     Indication: CROHN^S DISEASE
     Dosage: ?          OTHER FREQUENCY:QOW;?
     Route: 058
  4. QUETIAPINE. [Concomitant]
     Active Substance: QUETIAPINE
  5. LORAZEPAM. [Concomitant]
     Active Substance: LORAZEPAM
  6. GABAPENTIN. [Concomitant]
     Active Substance: GABAPENTIN
  7. MORPHINE [Concomitant]
     Active Substance: MORPHINE
  8. IPRATROPIUM [Concomitant]
     Active Substance: IPRATROPIUM
  9. POT CHLORIDE [Concomitant]
     Active Substance: POTASSIUM CHLORIDE
  10. LITHIUM. [Concomitant]
     Active Substance: LITHIUM
  11. CLONAZEPAM. [Concomitant]
     Active Substance: CLONAZEPAM
  12. FUROSEMIDE. [Concomitant]
     Active Substance: FUROSEMIDE
  13. CLONDINE [Concomitant]
     Active Substance: CLONIDINE
  14. LEFLUNOMIDE. [Concomitant]
     Active Substance: LEFLUNOMIDE
  15. HYDROXCHLOR [Concomitant]
  16. DEXMETHYPHE [Concomitant]
  17. AMOX/K CLAV [Concomitant]
     Active Substance: AMOXICILLIN\CLAVULANATE POTASSIUM
  18. PREDNISONE. [Concomitant]
     Active Substance: PREDNISONE
  19. ARIPIPRAZOLE. [Concomitant]
     Active Substance: ARIPIPRAZOLE

REACTIONS (13)
  - Cardiac failure [None]
  - Stomatitis [None]
  - Joint swelling [None]
  - Erythema [None]
  - Skin laceration [None]
  - Peripheral swelling [None]
  - Skin lesion [None]
  - Visual acuity reduced [None]
  - Dysphagia [None]
  - Skin discolouration [None]
  - Wound infection [None]
  - Arthralgia [None]
  - Localised infection [None]

NARRATIVE: CASE EVENT DATE: 20190723
